FAERS Safety Report 13757203 (Version 1)
Quarter: 2017Q3

REPORT INFORMATION
  Report Type: Spontaneous
  Country: US (occurrence: US)
  Receive Date: 20170714
  Receipt Date: 20170714
  Transmission Date: 20171127
  Serious: Yes (Hospitalization, Other)
  Sender: FDA-Public Use
  Company Number: None

PATIENT
  Age: 61 Year
  Sex: Female

DRUGS (1)
  1. CAPECITABINE. [Suspect]
     Active Substance: CAPECITABINE
     Indication: BREAST CANCER
     Dosage: ?          OTHER DOSE:MG;?1500 MG TWICE A DAY ORAL
     Route: 048
     Dates: start: 20170613, end: 20170713

REACTIONS (1)
  - Disease progression [None]

NARRATIVE: CASE EVENT DATE: 20170710
